FAERS Safety Report 6734362-7 (Version None)
Quarter: 2010Q2

REPORT INFORMATION
  Report Type: 
  Country: None (occurrence: None)
  Receive Date: 20100520
  Receipt Date: 20100505
  Transmission Date: 20101027
  Serious: No
  Sender: FDA-Public Use
  Company Number: US-ROXANE LABORATORIES, INC.-2010-RO-00615RO

PATIENT
  Sex: Female

DRUGS (5)
  1. AZATHIOPRINE [Suspect]
     Indication: ARTHRITIS
     Dosage: 100 MG
     Route: 048
     Dates: start: 20100423, end: 20100423
  2. LORAZEPAM [Suspect]
     Indication: ANXIETY
  3. PREDNISONE TAB [Suspect]
     Indication: ANXIETY
  4. ZYRTEC [Concomitant]
  5. LUNESTA [Concomitant]
     Indication: INSOMNIA

REACTIONS (4)
  - DIARRHOEA [None]
  - DIZZINESS [None]
  - SYNCOPE [None]
  - VOMITING [None]
